FAERS Safety Report 9556474 (Version 1)
Quarter: 2013Q3

REPORT INFORMATION
  Report Type: Spontaneous
  Country: US (occurrence: None)
  Receive Date: 20130909
  Receipt Date: 20130909
  Transmission Date: 20140515
  Serious: Yes (Hospitalization, Other)
  Sender: FDA-Public Use
  Company Number: 374370

PATIENT
  Age: 64 Year
  Sex: Female
  Weight: 101.6 kg

DRUGS (14)
  1. VICTOZA [Suspect]
     Indication: TYPE 2 DIABETES MELLITUS
     Route: 058
     Dates: start: 201201, end: 20130327
  2. METFORMIN (METFORMIN) [Concomitant]
  3. ADDERALL (AMFETAMINE ASPARTATE, AMFETAMINE SULFATE, DEXAMFETAMINE SACCHARATE, DEXAMFETAMINE SULFATE) [Concomitant]
  4. AMBIEN (ZOLPIDEM TARTRATE) [Concomitant]
  5. DEMADEX /01036501/ (TORASEMIDE) [Concomitant]
  6. DOXYCYCLINE (DOXYCYCLINE) [Concomitant]
  7. ROPINIROLE  (ROPINIROLE) [Concomitant]
  8. SYNTHROID (LEVOTHYROXINE SODIUM) [Concomitant]
  9. VITAMIN D3 (COLECALCIFEROL) [Concomitant]
  10. PREVACID (LANSOPRAZOLE) [Concomitant]
  11. POTASSIUM (POTASSIUM) [Concomitant]
  12. METROGEL (METRONIDAZOLE) [Concomitant]
  13. ROPINIROLE (ROPINIROLE) [Concomitant]
  14. FUROSEMIDE (FUROSEMIDE) [Concomitant]

REACTIONS (1)
  - Pancreatitis [None]
